FAERS Safety Report 14088238 (Version 3)
Quarter: 2017Q4

REPORT INFORMATION
  Report Type: Report from Study
  Country: US (occurrence: US)
  Receive Date: 20171013
  Receipt Date: 20171229
  Transmission Date: 20180321
  Serious: Yes (Hospitalization)
  Sender: FDA-Public Use
  Company Number: PHHO2017US013735

PATIENT

DRUGS (12)
  1. METHOTREXATE. [Suspect]
     Active Substance: METHOTREXATE
     Indication: B PRECURSOR TYPE ACUTE LEUKAEMIA
     Dosage: 15 MG, UNK
     Route: 037
     Dates: start: 20170918
  2. CYTARABINE. [Suspect]
     Active Substance: CYTARABINE
     Indication: B PRECURSOR TYPE ACUTE LEUKAEMIA
     Dosage: 135 MG, QD
     Route: 042
     Dates: start: 20170313
  3. CYCLOPHOSPHAMIDE. [Suspect]
     Active Substance: CYCLOPHOSPHAMIDE
     Indication: B PRECURSOR TYPE ACUTE LEUKAEMIA
     Dosage: 1780 MG, QD
     Route: 042
     Dates: start: 20170313
  4. CYTARABINE. [Suspect]
     Active Substance: CYTARABINE
     Dosage: 135 MG, QD
     Route: 042
     Dates: start: 20170918, end: 20170921
  5. CYTARABINE. [Suspect]
     Active Substance: CYTARABINE
     Dosage: 135 MG, QD
     Route: 042
     Dates: start: 20170925, end: 20170928
  6. VORICONAZOLE. [Concomitant]
     Active Substance: VORICONAZOLE
     Indication: PNEUMONIA
     Dosage: 200 MG, BID
     Route: 048
     Dates: start: 20170925, end: 20170930
  7. INC424A [Suspect]
     Active Substance: RUXOLITINIB
     Dosage: 70 MG, QD
     Route: 048
     Dates: start: 20170925
  8. CYCLOPHOSPHAMIDE. [Suspect]
     Active Substance: CYCLOPHOSPHAMIDE
     Dosage: 1780 MG, QD
     Route: 042
     Dates: start: 20170327
  9. INC424A [Suspect]
     Active Substance: RUXOLITINIB
     Indication: B PRECURSOR TYPE ACUTE LEUKAEMIA
     Dosage: 70 MG, BID
     Route: 048
     Dates: start: 20170313
  10. CYTARABINE. [Suspect]
     Active Substance: CYTARABINE
     Dosage: 135 MG, UNK
     Route: 042
     Dates: start: 20170513
  11. THIOGUANINE [Suspect]
     Active Substance: THIOGUANINE
     Indication: B PRECURSOR TYPE ACUTE LEUKAEMIA
     Dosage: 100 MG NIGHTLY, AND 120 NIGHTLY (S-S) FOR 14 DAYS
     Route: 048
     Dates: start: 20170918
  12. VORICONAZOLE. [Concomitant]
     Active Substance: VORICONAZOLE
     Dosage: 200 MG BID
     Route: 048
     Dates: start: 20170925, end: 20170930

REACTIONS (2)
  - Lung infection [Recovering/Resolving]
  - Periorbital cellulitis [Recovered/Resolved]

NARRATIVE: CASE EVENT DATE: 20170921
